FAERS Safety Report 18327953 (Version 7)
Quarter: 2023Q2

REPORT INFORMATION
  Report Type: Other
  Country: CA (occurrence: CA)
  Receive Date: 20200929
  Receipt Date: 20230421
  Transmission Date: 20230721
  Serious: Yes (Hospitalization)
  Sender: FDA-Public Use
  Company Number: CA-CELLTRION INC.-2020CA027370

PATIENT

DRUGS (52)
  1. RITUXIMAB [Suspect]
     Active Substance: RITUXIMAB
     Indication: Polyarteritis nodosa
     Dosage: 1000.0 MILLIGRAM
     Route: 042
  2. RITUXIMAB [Suspect]
     Active Substance: RITUXIMAB
     Indication: Granulomatosis with polyangiitis
     Dosage: 1000.0 MILLIGRAM
     Route: 042
  3. RITUXIMAB [Suspect]
     Active Substance: RITUXIMAB
     Dosage: 1000.0 MILLIGRAM
     Route: 042
  4. RITUXIMAB [Suspect]
     Active Substance: RITUXIMAB
     Dosage: 1000.0 MILLIGRAM
     Route: 042
  5. RITUXIMAB [Suspect]
     Active Substance: RITUXIMAB
     Dosage: 1000.0 MILLIGRAM
     Route: 042
  6. RITUXIMAB [Suspect]
     Active Substance: RITUXIMAB
     Dosage: 500.0 MILLIGRAM
     Route: 042
  7. RITUXIMAB [Suspect]
     Active Substance: RITUXIMAB
     Dosage: 500.0 MILLIGRAM
     Route: 042
  8. RITUXIMAB [Suspect]
     Active Substance: RITUXIMAB
     Dosage: 500.0 MILLIGRAM
     Route: 042
  9. RITUXIMAB [Suspect]
     Active Substance: RITUXIMAB
     Dosage: 500.0 MILLIGRAM
     Route: 042
  10. RITUXIMAB [Suspect]
     Active Substance: RITUXIMAB
     Dosage: 1000.0 MILLIGRAM
     Route: 042
  11. RITUXIMAB [Suspect]
     Active Substance: RITUXIMAB
     Dosage: 1000.0 MILLIGRAM
     Route: 042
  12. RITUXIMAB [Suspect]
     Active Substance: RITUXIMAB
     Dosage: UNK
     Route: 065
  13. RITUXIMAB [Suspect]
     Active Substance: RITUXIMAB
     Dosage: 1000 MILLIGRAM
     Route: 042
  14. RITUXIMAB [Suspect]
     Active Substance: RITUXIMAB
     Dosage: 500.0 MILLIGRAM
     Route: 042
  15. METHYLPREDNISOLONE [Suspect]
     Active Substance: METHYLPREDNISOLONE
     Indication: Premedication
     Dosage: 100.0 MILLIGRAM
     Route: 042
  16. METHYLPREDNISOLONE [Suspect]
     Active Substance: METHYLPREDNISOLONE
     Dosage: 100.0 MILLIGRAM
     Route: 042
  17. METHYLPREDNISOLONE SODIUM SUCCINATE [Suspect]
     Active Substance: METHYLPREDNISOLONE SODIUM SUCCINATE
     Indication: Premedication
     Dosage: 100 MILLIGRAM
     Route: 042
  18. ACETAMINOPHEN [Concomitant]
     Active Substance: ACETAMINOPHEN
     Indication: Premedication
     Dosage: 650.0 MILLIGRAM
     Route: 048
  19. ACETAMINOPHEN [Concomitant]
     Active Substance: ACETAMINOPHEN
     Dosage: 1000.0 MILLIGRAM
     Route: 048
  20. ACETAMINOPHEN [Concomitant]
     Active Substance: ACETAMINOPHEN
     Dosage: 650.0 MILLIGRAM
     Route: 048
  21. ACETAMINOPHEN [Concomitant]
     Active Substance: ACETAMINOPHEN
     Dosage: 650 MILLIGRAM
     Route: 048
  22. ACETAMINOPHEN [Concomitant]
     Active Substance: ACETAMINOPHEN
     Dosage: 1000.0 MILLIGRAM
     Route: 048
  23. ACETAMINOPHEN [Concomitant]
     Active Substance: ACETAMINOPHEN
     Indication: Premedication
     Dosage: 650.0 MILLIGRAM
     Route: 048
  24. ASPIRIN [Concomitant]
     Active Substance: ASPIRIN
     Dosage: UNK
  25. ASPIRIN [Concomitant]
     Active Substance: ASPIRIN
     Route: 065
  26. ALENDRONATE SODIUM\CHOLECALCIFEROL [Concomitant]
     Active Substance: ALENDRONATE SODIUM\CHOLECALCIFEROL
  27. ALENDRONATE SODIUM\CHOLECALCIFEROL [Concomitant]
     Active Substance: ALENDRONATE SODIUM\CHOLECALCIFEROL
     Route: 048
  28. ATORVASTATIN [Concomitant]
     Active Substance: ATORVASTATIN
  29. ATORVASTATIN [Concomitant]
     Active Substance: ATORVASTATIN
     Dosage: UNK
     Route: 048
  30. ATORVASTATIN CALCIUM [Concomitant]
     Active Substance: ATORVASTATIN CALCIUM
  31. BISOPROLOL FUMARATE [Concomitant]
     Active Substance: BISOPROLOL FUMARATE
  32. BISOPROLOL [Concomitant]
     Active Substance: BISOPROLOL
     Route: 065
  33. CHOLECALCIFEROL [Concomitant]
     Active Substance: CHOLECALCIFEROL
  34. DIPHENHYDRAMINE HYDROCHLORIDE [Concomitant]
     Active Substance: DIPHENHYDRAMINE HYDROCHLORIDE
     Indication: Premedication
     Dosage: 50.0 MILLIGRAM
     Route: 048
  35. DIPHENHYDRAMINE HYDROCHLORIDE [Concomitant]
     Active Substance: DIPHENHYDRAMINE HYDROCHLORIDE
     Dosage: 50.0 MILLIGRAM
     Route: 048
  36. ELAVIL [Concomitant]
     Active Substance: AMITRIPTYLINE HYDROCHLORIDE
  37. ELAVIL [Concomitant]
     Active Substance: AMITRIPTYLINE HYDROCHLORIDE
  38. FOLIC ACID [Concomitant]
     Active Substance: FOLIC ACID
  39. FOLIC ACID [Concomitant]
     Active Substance: FOLIC ACID
  40. FORTEO [Concomitant]
     Active Substance: TERIPARATIDE
     Route: 065
  41. GLICLAZIDE [Concomitant]
     Active Substance: GLICLAZIDE
  42. LANSOPRAZOLE [Concomitant]
     Active Substance: LANSOPRAZOLE
  43. METFORMIN [Concomitant]
     Active Substance: METFORMIN HYDROCHLORIDE
     Route: 065
  44. METFORMIN [Concomitant]
     Active Substance: METFORMIN HYDROCHLORIDE
     Route: 065
  45. METHOTREXATE [Concomitant]
     Active Substance: METHOTREXATE
     Dosage: UNK
     Route: 048
  46. METHOTREXATE [Concomitant]
     Active Substance: METHOTREXATE
     Dosage: UNK
     Route: 037
  47. NIFEDIPINE [Concomitant]
     Active Substance: NIFEDIPINE
  48. NIFEDIPINE [Concomitant]
     Active Substance: NIFEDIPINE
  49. PREDNISONE [Concomitant]
     Active Substance: PREDNISONE
     Dosage: 10.0 MILLIGRAM, 1 EVERY 1 DAYS
     Route: 065
  50. RAMIPRIL [Concomitant]
     Active Substance: RAMIPRIL
  51. VITAMIN D3 [Concomitant]
     Active Substance: CHOLECALCIFEROL
  52. VITAMIN D3 [Concomitant]
     Active Substance: CHOLECALCIFEROL

REACTIONS (15)
  - Blood pressure diastolic abnormal [Recovered/Resolved]
  - Blood pressure systolic increased [Recovered/Resolved]
  - Oxygen saturation decreased [Recovered/Resolved]
  - Agitation [Recovered/Resolved]
  - Malaise [Recovered/Resolved]
  - Back pain [Recovered/Resolved]
  - Blood pressure increased [Recovered/Resolved]
  - Heart rate increased [Recovered/Resolved]
  - Infusion related reaction [Recovered/Resolved]
  - Palpitations [Recovered/Resolved]
  - Pyrexia [Recovered/Resolved]
  - Drug ineffective [Recovered/Resolved]
  - Off label use [Recovered/Resolved]
  - Intentional product use issue [Recovered/Resolved]
  - Off label use [Unknown]
